FAERS Safety Report 10198949 (Version 1)
Quarter: 2014Q2

REPORT INFORMATION
  Report Type: Spontaneous
  Country: US (occurrence: US)
  Receive Date: 20140527
  Receipt Date: 20140527
  Transmission Date: 20141212
  Serious: Yes (Hospitalization, Other)
  Sender: FDA-Public Use
  Company Number: US-ELI_LILLY_AND_COMPANY-US201405005268

PATIENT
  Sex: Male

DRUGS (5)
  1. INSULIN HUMAN [Suspect]
     Indication: TYPE 2 DIABETES MELLITUS
     Dosage: 125 U, BID
     Route: 065
     Dates: start: 2012
  2. INSULIN HUMAN [Suspect]
     Dosage: 130 U, QD
     Route: 065
     Dates: start: 2012
  3. INSULIN HUMAN [Suspect]
     Indication: TYPE 2 DIABETES MELLITUS
     Dosage: UNK
     Route: 065
     Dates: start: 2013
  4. METFORMIN [Concomitant]
  5. NOVOLOG [Concomitant]
     Dosage: UNK, PRN

REACTIONS (2)
  - Blood glucose increased [Unknown]
  - Incorrect drug dosage form administered [Recovered/Resolved]
